FAERS Safety Report 12597081 (Version 2)
Quarter: 2016Q3

REPORT INFORMATION
  Report Type: Report from Study
  Country: MX (occurrence: MX)
  Receive Date: 20160727
  Receipt Date: 20160729
  Transmission Date: 20161109
  Serious: Yes (Death, Other)
  Sender: FDA-Public Use
  Company Number: PHHY2016MX102432

PATIENT
  Age: 40 Year
  Sex: Female

DRUGS (3)
  1. AFINITOR [Suspect]
     Active Substance: EVEROLIMUS
     Indication: BREAST CANCER
     Dosage: 1 DF, QD
     Route: 048
     Dates: start: 2015
  2. FEMARA [Suspect]
     Active Substance: LETROZOLE
     Indication: BREAST CANCER
     Dosage: 2.5 MG, QD
     Route: 048
     Dates: start: 20160623
  3. VITAMIN K [Concomitant]
     Active Substance: PHYTONADIONE
     Indication: CONTUSION
     Dosage: 1 DF, Q72H
     Route: 030
     Dates: start: 20160702

REACTIONS (10)
  - Haematoma [Not Recovered/Not Resolved]
  - Skeletal injury [Not Recovered/Not Resolved]
  - Septic shock [Fatal]
  - Platelet count decreased [Not Recovered/Not Resolved]
  - Metastases to central nervous system [Fatal]
  - Pleural effusion [Recovered/Resolved]
  - Metastases to bone marrow [Fatal]
  - Abscess jaw [Fatal]
  - Breast cancer [Fatal]
  - Liver injury [Not Recovered/Not Resolved]

NARRATIVE: CASE EVENT DATE: 201601
